FAERS Safety Report 5979690-8 (Version None)
Quarter: 2008Q4

REPORT INFORMATION
  Report Type: 
  Country: None (occurrence: None)
  Receive Date: 20081204
  Receipt Date: 20080217
  Transmission Date: 20090506
  Serious: No
  Sender: FDA-Public Use
  Company Number: US-AMGEN-KDL265854

PATIENT
  Sex: Female

DRUGS (2)
  1. ENBREL [Suspect]
     Indication: PSORIATIC ARTHROPATHY
     Route: 058
     Dates: start: 20071205
  2. METHOTREXATE [Concomitant]
     Route: 048
     Dates: start: 20070401

REACTIONS (3)
  - EYE PRURITUS [None]
  - EYE SWELLING [None]
  - PRURITUS [None]
